FAERS Safety Report 7802470-5 (Version None)
Quarter: 2011Q4

REPORT INFORMATION
  Report Type: 
  Country: None (occurrence: None)
  Receive Date: 20111007
  Receipt Date: 20110930
  Transmission Date: 20120403
  Serious: Yes (Other)
  Sender: FDA-Public Use
  Company Number: US-GLAXOSMITHKLINE-A0946620A

PATIENT
  Age: 49 Year
  Sex: Male

DRUGS (2)
  1. HYDROCHLOROTHIAZIDE [Concomitant]
  2. LOVAZA [Suspect]
     Indication: BLOOD TRIGLYCERIDES INCREASED
     Dosage: 2CAP TWICE PER DAY
     Route: 048
     Dates: start: 20110909, end: 20110930

REACTIONS (4)
  - HAEMATOCHEZIA [None]
  - DIZZINESS [None]
  - DISCOMFORT [None]
  - ANORECTAL DISCOMFORT [None]
